FAERS Safety Report 4279656-2 (Version None)
Quarter: 2004Q1

REPORT INFORMATION
  Report Type: 
  Country: None (occurrence: None)
  Receive Date: 20040123
  Receipt Date: 20040113
  Transmission Date: 20041129
  Serious: Yes (Death)
  Sender: FDA-Public Use
  Company Number: US-JNJFOC-20040102701

PATIENT
  Age: 25 Year
  Sex: Male
  Weight: 71.6683 kg

DRUGS (4)
  1. REMICADE [Suspect]
     Indication: CROHN'S DISEASE
     Dosage: 5 MG/KG, INTRAVENOUS
     Route: 042
     Dates: start: 20030826
  2. REMICADE [Suspect]
     Indication: CROHN'S DISEASE
     Dosage: 5 MG/KG, INTRAVENOUS
     Route: 042
     Dates: start: 20030929
  3. ACETAMINOPHEN [Concomitant]
  4. ANTIHISTAMINE (ANTIHISTAMINES) [Concomitant]

REACTIONS (1)
  - ROAD TRAFFIC ACCIDENT [None]
